FAERS Safety Report 9821202 (Version 1)
Quarter: 2013Q4

REPORT INFORMATION
  Report Type: Spontaneous
  Country: US (occurrence: None)
  Receive Date: 20131028
  Receipt Date: 20131028
  Transmission Date: 20140711
  Serious: Yes (Other)
  Sender: FDA-Public Use
  Company Number: 2013US001152

PATIENT
  Age: 72 Year
  Sex: Male
  Weight: 91.6 kg

DRUGS (13)
  1. ICLUSIG [Suspect]
     Indication: CHRONIC MYELOID LEUKAEMIA
     Route: 048
     Dates: start: 20130206
  2. ASPIRIN (ASPIRIN) [Concomitant]
  3. PLAVIX (CLOPIDOGREL BISULFATE) (CLOPIDOGREL BISULFATE) [Concomitant]
  4. METROGEL (METRONIDAZOLE) [Concomitant]
  5. ALPRAZOLAM (ALPRAZOLAM) [Concomitant]
  6. JANUMET (METFORMIN HYDROCHLORIDE, SITAGLIPTIN PHOSPHATE MONOHYDRATE) [Concomitant]
  7. ATENOLOL (ATENOLOL) [Concomitant]
  8. COMBIVENT (LPRATROPIUM BROMIDE, SALBUTOMAL SULFATE) [Concomitant]
  9. ADVAIR (FLUTICASONE PROPIONATE, SALMETEROL XINAFOATE) [Concomitant]
  10. IPRATROPIUM BROMIDE/ALBUTEROL SULFATE (LPRATROPIUM BROMIDE, SALBUTOMAL SULFATE) [Concomitant]
  11. LOSARTAN (LOSARTAN) [Concomitant]
  12. HYDROCHLOROTHIAZIDE (HYDROCHLOROTHIAZOLE) [Concomitant]
  13. WELCHOL (COLESEVELAM HYDROCHLORIDE) TABLET [Concomitant]

REACTIONS (3)
  - Abdominal pain [None]
  - Constipation [None]
  - Rash [None]
